FAERS Safety Report 15801651 (Version 2)
Quarter: 2019Q1

REPORT INFORMATION
  Report Type: Spontaneous
  Country: US (occurrence: US)
  Receive Date: 20190109
  Receipt Date: 20190228
  Transmission Date: 20190417
  Serious: No
  Sender: FDA-Public Use
  Company Number: US-PFIZER INC-2019010842

PATIENT
  Age: 74 Year
  Sex: Female

DRUGS (5)
  1. TOPROL XL [Suspect]
     Active Substance: METOPROLOL SUCCINATE
     Dosage: UNK
  2. BEXTRA [Suspect]
     Active Substance: VALDECOXIB
     Dosage: UNK
  3. BEXTRA [Suspect]
     Active Substance: VALDECOXIB
     Dosage: UNK
  4. LYRICA [Suspect]
     Active Substance: PREGABALIN
     Dosage: UNK
  5. BEXTRA [BUCINDOLOL HYDROCHLORIDE] [Suspect]
     Active Substance: BUCINDOLOL HYDROCHLORIDE
     Dosage: UNK

REACTIONS (1)
  - Drug hypersensitivity [Unknown]
